FAERS Safety Report 17056726 (Version 2)
Quarter: 2019Q4

REPORT INFORMATION
  Report Type: Report from Study
  Country: DE (occurrence: DE)
  Receive Date: 20191121
  Receipt Date: 20191222
  Transmission Date: 20200122
  Serious: Yes (Other)
  Sender: FDA-Public Use
  Company Number: DE-BRISTOL-MYERS SQUIBB COMPANY-BMS-2019-108804

PATIENT
  Age: 68 Year
  Sex: Male

DRUGS (1)
  1. NIVOLUMAB [Suspect]
     Active Substance: NIVOLUMAB
     Indication: MALIGNANT MELANOMA
     Dosage: 261 MILLIGRAM, Q2WK
     Route: 042
     Dates: start: 20190425

REACTIONS (2)
  - Neoplasm [Not Recovered/Not Resolved]
  - Vitreous opacities [Unknown]

NARRATIVE: CASE EVENT DATE: 20190819
